FAERS Safety Report 12001438 (Version 10)
Quarter: 2017Q4

REPORT INFORMATION
  Report Type: Report from Study
  Country: US (occurrence: US)
  Receive Date: 20160204
  Receipt Date: 20171109
  Transmission Date: 20180320
  Serious: Yes (Other)
  Sender: FDA-Public Use
  Company Number: PHEH2016US002631

PATIENT
  Age: 39 Year
  Sex: Female

DRUGS (5)
  1. AFINITOR [Suspect]
     Active Substance: EVEROLIMUS
     Indication: ANGIOMYOLIPOMA
     Dosage: 10 MG, QD (PER DAY)
     Route: 048
     Dates: start: 20150811
  2. AFINITOR [Suspect]
     Active Substance: EVEROLIMUS
     Indication: ASTROCYTOMA, LOW GRADE
     Dosage: 10 MG, QD (PER DAY)
     Route: 048
     Dates: start: 20150811
  3. LEXAPRO [Concomitant]
     Active Substance: ESCITALOPRAM OXALATE
     Indication: PRODUCT USED FOR UNKNOWN INDICATION
     Route: 065
  4. XARELTO [Concomitant]
     Active Substance: RIVAROXABAN
     Indication: PRODUCT USED FOR UNKNOWN INDICATION
     Dosage: UNK
     Route: 065
     Dates: start: 2015
  5. METOPROLOL. [Concomitant]
     Active Substance: METOPROLOL
     Indication: PRODUCT USED FOR UNKNOWN INDICATION
     Route: 065

REACTIONS (24)
  - Face injury [Unknown]
  - Menorrhagia [Unknown]
  - Hernia [Unknown]
  - Muscle strain [Unknown]
  - Pain [Unknown]
  - Fatigue [Unknown]
  - Hair colour changes [Unknown]
  - Decreased appetite [Unknown]
  - Seroma [Not Recovered/Not Resolved]
  - Malaise [Unknown]
  - Menorrhagia [Recovered/Resolved]
  - Nausea [Unknown]
  - Thrombosis [Unknown]
  - Musculoskeletal chest pain [Unknown]
  - Hyperhidrosis [Unknown]
  - Pain of skin [Unknown]
  - Haematoma [Unknown]
  - Nail disorder [Unknown]
  - Pyrexia [Unknown]
  - Alopecia [Unknown]
  - Abdominal discomfort [Unknown]
  - Stomatitis [Not Recovered/Not Resolved]
  - Amenorrhoea [Unknown]
  - Weight decreased [Unknown]

NARRATIVE: CASE EVENT DATE: 20160524
